FAERS Safety Report 23289959 (Version 1)
Quarter: 2023Q4

REPORT INFORMATION
  Report Type: Spontaneous
  Country: CN (occurrence: CN)
  Receive Date: 20231212
  Receipt Date: 20231212
  Transmission Date: 20240110
  Serious: Yes (Hospitalization, Other)
  Sender: FDA-Public Use
  Company Number: CN-BAYER-2023A174086

PATIENT
  Age: 74 Year
  Sex: Female
  Weight: 64 kg

DRUGS (2)
  1. XARELTO [Suspect]
     Active Substance: RIVAROXABAN
     Indication: Thrombosis prophylaxis
     Dosage: 10 MG, QD
     Route: 048
     Dates: start: 20211201, end: 20231204
  2. XARELTO [Suspect]
     Active Substance: RIVAROXABAN
     Indication: Anticoagulant therapy
     Route: 048

REACTIONS (8)
  - Cholestatic liver injury [Recovering/Resolving]
  - Abdominal pain upper [Recovering/Resolving]
  - Hyperbilirubinaemia [Not Recovered/Not Resolved]
  - Cholangiectasis acquired [Unknown]
  - Pancreatic duct dilatation [Unknown]
  - Hepatic steatosis [Unknown]
  - Renal cyst [Unknown]
  - Respiratory rate increased [Unknown]

NARRATIVE: CASE EVENT DATE: 20231201
